FAERS Safety Report 6971759-4 (Version None)
Quarter: 2010Q3

REPORT INFORMATION
  Report Type: 
  Country: None (occurrence: None)
  Receive Date: 20100903
  Receipt Date: 20100809
  Transmission Date: 20110219
  Serious: Yes (Death)
  Sender: FDA-Public Use
  Company Number: JP-SOLVAY-00210000849

PATIENT
  Sex: Female

DRUGS (10)
  1. FLUVOXAMINE MALEATE [Suspect]
     Indication: DEPRESSION
     Dosage: 25 MILLIGRAM(S) ORAL ; 50 MILLIGRAM(S), ORAL ; 30 MILLIGRAM(S), ORAL ; 45 MILLIGRAM(S), ORAL
     Route: 048
     Dates: start: 20090725, end: 20090101
  2. FLUVOXAMINE MALEATE [Suspect]
     Indication: DEPRESSION
     Dosage: 25 MILLIGRAM(S) ORAL ; 50 MILLIGRAM(S), ORAL ; 30 MILLIGRAM(S), ORAL ; 45 MILLIGRAM(S), ORAL
     Route: 048
     Dates: start: 20090718, end: 20090724
  3. FLUVOXAMINE MALEATE [Suspect]
     Indication: DEPRESSION
     Dosage: 25 MILLIGRAM(S) ORAL ; 50 MILLIGRAM(S), ORAL ; 30 MILLIGRAM(S), ORAL ; 45 MILLIGRAM(S), ORAL
     Route: 048
     Dates: start: 20090925, end: 20091216
  4. FLUVOXAMINE MALEATE [Suspect]
     Indication: DEPRESSION
     Dosage: 25 MILLIGRAM(S) ORAL ; 50 MILLIGRAM(S), ORAL ; 30 MILLIGRAM(S), ORAL ; 45 MILLIGRAM(S), ORAL
     Route: 048
     Dates: start: 20091217, end: 20091226
  5. MIRTAZAPINE [Suspect]
     Indication: DEPRESSION
     Dosage: 15 MILLIGRAM(S), ORAL ; 30 MILLIGRAM(S), ORAL ; 45 MILILGRAM(S), ORAL
     Dates: start: 20091105, end: 20091125
  6. MIRTAZAPINE [Suspect]
     Indication: DEPRESSION
     Dosage: 15 MILLIGRAM(S), ORAL ; 30 MILLIGRAM(S), ORAL ; 45 MILILGRAM(S), ORAL
     Dates: start: 20091126, end: 20091202
  7. MIRTAZAPINE [Suspect]
     Indication: DEPRESSION
     Dosage: 15 MILLIGRAM(S), ORAL ; 30 MILLIGRAM(S), ORAL ; 45 MILILGRAM(S), ORAL
     Dates: start: 20091203, end: 20091226
  8. DEPAS (ETIZOLAM) [Suspect]
     Indication: INSOMNIA
     Dosage: 2 MILLIGRAM(S), ORAL
     Route: 048
     Dates: start: 20091210, end: 20091226
  9. PERPHENAZINE [Suspect]
     Indication: DEPRESSION
     Dosage: 6 MILLIGRAM(S), ORAL
     Route: 048
     Dates: start: 20091210, end: 20091226
  10. TENORMIN [Concomitant]

REACTIONS (5)
  - COMPLETED SUICIDE [None]
  - DRUG INEFFECTIVE [None]
  - PULMONARY HAEMORRHAGE [None]
  - ROAD TRAFFIC ACCIDENT [None]
  - TRAUMATIC LUNG INJURY [None]
